FAERS Safety Report 7300592-9 (Version None)
Quarter: 2011Q1

REPORT INFORMATION
  Report Type: 
  Country: None (occurrence: None)
  Receive Date: 20110218
  Receipt Date: 20110210
  Transmission Date: 20110831
  Serious: No
  Sender: FDA-Public Use
  Company Number: US-BIOGENIDEC-2011BI005240

PATIENT
  Age: 33 Year
  Sex: Female

DRUGS (2)
  1. INFLUENZA VACCINE [Concomitant]
     Indication: ANTIVIRAL PROPHYLAXIS
     Dates: start: 20100101, end: 20100101
  2. TYSABRI [Suspect]
     Indication: MULTIPLE SCLEROSIS
     Route: 042
     Dates: start: 20091123

REACTIONS (7)
  - PAIN IN EXTREMITY [None]
  - VERTIGO [None]
  - HYPERHIDROSIS [None]
  - HEADACHE [None]
  - SINUSITIS [None]
  - CONFUSIONAL STATE [None]
  - FEELING HOT [None]
